FAERS Safety Report 18338970 (Version 1)
Quarter: 2020Q4

REPORT INFORMATION
  Report Type: Spontaneous
  Country: FR (occurrence: FR)
  Receive Date: 20201002
  Receipt Date: 20201002
  Transmission Date: 20210113
  Serious: Yes (Hospitalization)
  Sender: FDA-Public Use
  Company Number: FR-TEVA-2020-FR-1833229

PATIENT
  Age: 76 Year
  Sex: Female

DRUGS (5)
  1. FLUCONAZOLE. [Suspect]
     Active Substance: FLUCONAZOLE
     Indication: CANDIDA INFECTION
     Dosage: 400MCG
     Route: 048
     Dates: start: 20200708, end: 20200715
  2. FLUCONAZOLE. [Suspect]
     Active Substance: FLUCONAZOLE
     Indication: CANDIDA INFECTION
     Route: 048
     Dates: start: 20200725, end: 20200805
  3. CEFEPIME [Suspect]
     Active Substance: CEFEPIME HYDROCHLORIDE
     Indication: LUNG DISORDER
     Dosage: 4 GRAM
     Route: 042
     Dates: start: 20200718, end: 20200724
  4. LINEZOLIDE [Suspect]
     Active Substance: LINEZOLID
     Indication: LUNG DISORDER
     Dosage: 1200MG
     Route: 042
     Dates: start: 20200718, end: 20200724
  5. LEVOFLOXACINE [Suspect]
     Active Substance: LEVOFLOXACIN
     Indication: LUNG DISORDER
     Dosage: 500MG
     Route: 048
     Dates: start: 20200725, end: 20200807

REACTIONS (2)
  - Rash [Not Recovered/Not Resolved]
  - Pruritus [Not Recovered/Not Resolved]

NARRATIVE: CASE EVENT DATE: 20200808
